FAERS Safety Report 4849246-9 (Version None)
Quarter: 2005Q4

REPORT INFORMATION
  Report Type: 
  Country: None (occurrence: None)
  Receive Date: 20051207
  Receipt Date: 20051121
  Transmission Date: 20060501
  Serious: Yes (Hospitalization)
  Sender: FDA-Public Use
  Company Number: 192807

PATIENT
  Age: 54 Year
  Sex: Male
  Weight: 58.9676 kg

DRUGS (11)
  1. AVONEX [Suspect]
     Indication: MULTIPLE SCLEROSIS
     Dosage: 30 UG;QW;IM
     Route: 030
     Dates: start: 20020627, end: 20031101
  2. AVONEX [Suspect]
     Indication: MULTIPLE SCLEROSIS
     Dosage: SEE IMAGE
     Route: 030
     Dates: start: 20030101, end: 20040101
  3. AVONEX [Suspect]
     Indication: MULTIPLE SCLEROSIS
     Dosage: SEE IMAGE
     Route: 030
     Dates: start: 20040501
  4. BACLOFEN [Concomitant]
  5. THEOPHYLLINE [Concomitant]
  6. SINGULAIR [Concomitant]
  7. CELEBREX [Concomitant]
  8. FUROSEMIDE [Concomitant]
  9. ALBUTEROL SULFATE [Concomitant]
  10. MEDICATION (NOS) [Concomitant]
  11. TEMAZEPAM [Concomitant]

REACTIONS (9)
  - ASTHMA [None]
  - CONDITION AGGRAVATED [None]
  - DIFFICULTY IN WALKING [None]
  - INFLUENZA LIKE ILLNESS [None]
  - MULTIPLE SCLEROSIS [None]
  - MUSCULAR WEAKNESS [None]
  - NON-SMALL CELL LUNG CANCER [None]
  - RECURRENT CANCER [None]
  - WEIGHT DECREASED [None]
